FAERS Safety Report 4887802-2 (Version None)
Quarter: 2006Q1

REPORT INFORMATION
  Report Type: 
  Country: None (occurrence: None)
  Receive Date: 20060118
  Receipt Date: 20060103
  Transmission Date: 20060701
  Serious: Yes (Death)
  Sender: FDA-Public Use
  Company Number: 2005S1000254

PATIENT
  Age: 70 Year
  Sex: Female
  Weight: 86 kg

DRUGS (21)
  1. CUBICIN [Suspect]
     Indication: WOUND INFECTION STAPHYLOCOCCAL
     Dosage: 5.8 MG/KG;Q24H;IV
     Route: 042
     Dates: start: 20050621, end: 20050629
  2. VANCOMYCIN [Concomitant]
  3. DOCUSATE [Concomitant]
  4. BUDESONIDE [Concomitant]
  5. EZETIMIBE [Concomitant]
  6. LOVENOX [Concomitant]
  7. FUROSEMIDE [Concomitant]
  8. INSULIN [Concomitant]
  9. METOCLOPRAMIDE [Concomitant]
  10. METOPROLOL [Concomitant]
  11. LORTAB [Concomitant]
  12. METRONIDAZOLE [Concomitant]
  13. MORPHINE [Concomitant]
  14. NIACIN [Concomitant]
  15. MYLANTA [Concomitant]
  16. K-DUR 10 [Concomitant]
  17. ONDANSETRON [Concomitant]
  18. RANITIDINE [Concomitant]
  19. CRESTOR [Concomitant]
  20. TIOTROPIUM [Concomitant]
  21. NITRO [Concomitant]

REACTIONS (5)
  - DISSEMINATED INTRAVASCULAR COAGULATION [None]
  - HEPATIC FAILURE [None]
  - INTERNATIONAL NORMALISED RATIO INCREASED [None]
  - MULTI-ORGAN FAILURE [None]
  - RENAL FAILURE [None]
